FAERS Safety Report 17549405 (Version 2)
Quarter: 2021Q1

REPORT INFORMATION
  Report Type: Spontaneous
  Country: US (occurrence: US)
  Receive Date: 20200317
  Receipt Date: 20210129
  Transmission Date: 20210419
  Serious: No
  Sender: FDA-Public Use
  Company Number: US-MYLANLABS-2020M1025928

PATIENT
  Sex: Male
  Weight: 33 kg

DRUGS (1)
  1. ARIXTRA [Suspect]
     Active Substance: FONDAPARINUX SODIUM
     Indication: PORTAL VEIN THROMBOSIS
     Dosage: 5 MILLIGRAM, QD
     Route: 058
     Dates: start: 202002

REACTIONS (2)
  - Alopecia [Unknown]
  - Product use issue [Unknown]

NARRATIVE: CASE EVENT DATE: 2020
